FAERS Safety Report 13345452 (Version 1)
Quarter: 2017Q1

REPORT INFORMATION
  Report Type: Spontaneous
  Country: US (occurrence: US)
  Receive Date: 20170316
  Receipt Date: 20170316
  Transmission Date: 20170428
  Serious: No
  Sender: FDA-Public Use
  Company Number: None

PATIENT
  Age: 69 Year
  Sex: Female

DRUGS (1)
  1. HUMIRA [Suspect]
     Active Substance: ADALIMUMAB
     Indication: RHEUMATOID ARTHRITIS
     Route: 058
     Dates: start: 20160823, end: 201702

REACTIONS (8)
  - Therapy cessation [None]
  - Chromaturia [None]
  - Hallucination [None]
  - Infection [None]
  - Fall [None]
  - Dizziness [None]
  - Vomiting [None]
  - Sepsis [None]

NARRATIVE: CASE EVENT DATE: 20170228
